FAERS Safety Report 5990504-2 (Version None)
Quarter: 2008Q4

REPORT INFORMATION
  Report Type: 
  Country: None (occurrence: None)
  Receive Date: 20081211
  Receipt Date: 20081203
  Transmission Date: 20090506
  Serious: Yes (Death)
  Sender: FDA-Public Use
  Company Number: IT-AMGEN-UK321241

PATIENT
  Sex: Male

DRUGS (4)
  1. PANITUMUMAB [Suspect]
     Indication: COLORECTAL CANCER
     Route: 065
     Dates: end: 20081106
  2. OXALIPLATIN [Concomitant]
     Route: 065
     Dates: end: 20081113
  3. FLUOROURACIL [Concomitant]
     Route: 065
     Dates: end: 20081113
  4. RADIATION THERAPY [Concomitant]
     Route: 065

REACTIONS (1)
  - DEATH [None]
